FAERS Safety Report 15570720 (Version 1)
Quarter: 2018Q4

REPORT INFORMATION
  Report Type: Spontaneous
  Country: US (occurrence: US)
  Receive Date: 20181031
  Receipt Date: 20181031
  Transmission Date: 20190205
  Serious: No
  Sender: FDA-Public Use
  Company Number: US-CURIUM PHARMACEUTICALS-201700219

PATIENT
  Age: 33 Year
  Sex: Female

DRUGS (2)
  1. SODIUM PERTECHNETATE TC 99M [Suspect]
     Active Substance: TECHNETIUM TC-99M SODIUM PERTECHNETATE
     Indication: HAEMANGIOMA OF LIVER
     Route: 042
     Dates: start: 20170703, end: 20170703
  2. ULTRATAG RBC [Suspect]
     Active Substance: TECHNETIUM TC-99M RED BLOOD CELLS
     Indication: HAEMANGIOMA OF LIVER
     Route: 042
     Dates: start: 20170703, end: 20170703

REACTIONS (2)
  - Drug ineffective [Recovered/Resolved]
  - Radioisotope scan abnormal [Recovered/Resolved]

NARRATIVE: CASE EVENT DATE: 20170703
